FAERS Safety Report 6448314-8 (Version None)
Quarter: 2009Q4

REPORT INFORMATION
  Report Type: 
  Country: None (occurrence: None)
  Receive Date: 20091120
  Receipt Date: 20091113
  Transmission Date: 20100525
  Serious: Yes (Hospitalization)
  Sender: FDA-Public Use
  Company Number: PHRM2007FR01693

PATIENT
  Age: 62 Year
  Sex: Male
  Weight: 110 kg

DRUGS (6)
  1. STALEVO 100 [Suspect]
     Indication: PARKINSON'S DISEASE
     Dosage: UNK, UNK
     Route: 048
     Dates: start: 20061001, end: 20070222
  2. SECTRAL [Concomitant]
     Indication: ESSENTIAL HYPERTENSION
     Dosage: 1 DF, QD
     Route: 048
  3. TRIVASTAL [Concomitant]
     Indication: PARKINSON'S DISEASE
     Dosage: UNK, UNK
     Route: 048
     Dates: start: 20061001
  4. TRIVASTAL [Concomitant]
     Route: 048
     Dates: start: 20070222
  5. ZESTORETIC [Concomitant]
     Indication: ESSENTIAL HYPERTENSION
     Dosage: UNK, UNK
     Route: 048
  6. TAHOR [Concomitant]
     Indication: HYPERCHOLESTEROLAEMIA
     Dosage: 1 DF, QD
     Route: 048

REACTIONS (5)
  - ABDOMINAL PAIN [None]
  - COLITIS [None]
  - CONSTIPATION [None]
  - DIARRHOEA [None]
  - WEIGHT DECREASED [None]
